FAERS Safety Report 4317806-X (Version None)
Quarter: 2004Q1

REPORT INFORMATION
  Report Type: 
  Country: None (occurrence: None)
  Receive Date: 20040316
  Receipt Date: 20040120
  Transmission Date: 20041129
  Serious: Yes (Hospitalization, Other)
  Sender: FDA-Public Use
  Company Number: PHNU2004DE00610

PATIENT
  Age: 81 Year
  Sex: Male
  Weight: 92 kg

DRUGS (14)
  1. ZOMETA [Suspect]
     Indication: PROSTATE CANCER METASTATIC
     Dosage: 4 MG, ONCE/SINGLE
     Route: 042
     Dates: start: 20040112, end: 20040112
  2. METOPROLOL SUCCINATE [Concomitant]
     Dosage: 95 MG, QD
     Route: 048
  3. CORIC [Concomitant]
     Dosage: 10 MG, QD
     Route: 048
  4. TOREM [Concomitant]
     Dosage: 200 MG, QD
     Route: 048
     Dates: start: 20040110
  5. MOLSIHEXAL [Concomitant]
     Dosage: 1 DF, QD
     Route: 048
  6. PRAVASIN [Concomitant]
     Dosage: 20 MG, QD
     Route: 048
  7. DURAGESIC [Concomitant]
     Dosage: 50 UG, UNK
     Route: 062
     Dates: end: 20040111
  8. DURAGESIC [Concomitant]
     Dosage: 25 UG, UNK
     Route: 062
     Dates: start: 20040112
  9. VITAMIN B COMPLEX CAP [Concomitant]
     Dosage: 1000 UNK, TID
     Route: 065
  10. AMITRIPTYLINE HCL [Concomitant]
     Dosage: 25 MG, QD
     Route: 048
  11. MACROGOL [Concomitant]
     Dosage: 1 DF, TID
     Route: 048
     Dates: start: 20010901
  12. SODIUM CHLORIDE INJ [Concomitant]
     Dosage: 1000ML/DAY
     Dates: start: 20040110
  13. EMBOLEX [Concomitant]
     Route: 065
     Dates: start: 20040110
  14. ROCEPHIN [Concomitant]
     Dosage: 1 G, QD
     Route: 042
     Dates: start: 20040115

REACTIONS (13)
  - ACUTE PRERENAL FAILURE [None]
  - ANURIA [None]
  - BLOOD CALCIUM DECREASED [None]
  - BLOOD CREATININE INCREASED [None]
  - BLOOD POTASSIUM INCREASED [None]
  - BLOOD UREA INCREASED [None]
  - BLOOD URIC ACID INCREASED [None]
  - DEHYDRATION [None]
  - DIALYSIS [None]
  - NEPHROTIC SYNDROME [None]
  - OSTEOLYSIS [None]
  - RENAL FAILURE ACUTE [None]
  - SPINAL FRACTURE [None]
